FAERS Safety Report 9931544 (Version 1)
Quarter: 2014Q1

REPORT INFORMATION
  Report Type: Spontaneous
  Country: US (occurrence: US)
  Receive Date: 20140228
  Receipt Date: 20140228
  Transmission Date: 20141002
  Serious: Yes (Other)
  Sender: FDA-Public Use
  Company Number: US-ASTRAZENECA-2014SE12718

PATIENT
  Age: 61 Year
  Sex: Female
  Weight: 29 kg

DRUGS (6)
  1. ARIMIDEX [Suspect]
     Indication: BREAST CANCER FEMALE
     Route: 048
     Dates: start: 20140203, end: 20140206
  2. ARIMIDEX [Suspect]
     Indication: BREAST CANCER FEMALE
     Route: 048
     Dates: start: 20140208, end: 20140214
  3. TAMOXIFEN [Suspect]
     Indication: BREAST CANCER FEMALE
     Route: 048
  4. AROMASIN [Suspect]
     Route: 065
     Dates: end: 201401
  5. ALBUTEROL [Concomitant]
     Indication: ASTHMA
     Dosage: PRN
  6. ASPIRIN [Concomitant]
     Indication: PAIN
     Dosage: UNK UNK

REACTIONS (24)
  - Haemorrhage [Unknown]
  - Breast cancer recurrent [Not Recovered/Not Resolved]
  - Lymphoedema [Unknown]
  - Platelet disorder [Unknown]
  - Asthma exercise induced [Not Recovered/Not Resolved]
  - Proctalgia [Unknown]
  - Palpitations [Recovered/Resolved]
  - Palpitations [Recovered/Resolved]
  - Pain in extremity [Recovered/Resolved]
  - Local swelling [Recovered/Resolved]
  - Vision blurred [Recovered/Resolved]
  - Dizziness [Recovered/Resolved]
  - Insomnia [Recovered/Resolved]
  - Dizziness [Recovered/Resolved]
  - Oropharyngeal pain [Recovered/Resolved]
  - Rhinorrhoea [Recovered/Resolved]
  - Malaise [Recovered/Resolved]
  - Pyrexia [Recovered/Resolved]
  - Blood pressure increased [Not Recovered/Not Resolved]
  - Arthralgia [Not Recovered/Not Resolved]
  - Arthralgia [Not Recovered/Not Resolved]
  - Diarrhoea [Unknown]
  - Off label use [Unknown]
  - Intentional drug misuse [Unknown]
